FAERS Safety Report 18885139 (Version 1)
Quarter: 2021Q1

REPORT INFORMATION
  Report Type: Spontaneous
  Country: US (occurrence: US)
  Receive Date: 20210211
  Receipt Date: 20210211
  Transmission Date: 20210420
  Serious: Yes (Other)
  Sender: FDA-Public Use
  Company Number: None

PATIENT
  Age: 72 Year
  Sex: Male
  Weight: 107.55 kg

DRUGS (10)
  1. VIRGIN OLIVE OIL SOFTGELS [Concomitant]
  2. NASACORT [Concomitant]
     Active Substance: TRIAMCINOLONE ACETONIDE
  3. CARVEDILOL. [Concomitant]
     Active Substance: CARVEDILOL
  4. OMEPRAZOLE. [Concomitant]
     Active Substance: OMEPRAZOLE
  5. MEDICAL GRADE MANUKA HONEY [Suspect]
     Active Substance: HERBALS\HONEY
     Indication: SINUS DISORDER
     Dosage: ?          OTHER ROUTE:SPRAYED INTO NOSE?
     Route: 045
     Dates: start: 20201018, end: 20201021
  6. NIFEDIPINE. [Concomitant]
     Active Substance: NIFEDIPINE
  7. SIMVASTATIN. [Concomitant]
     Active Substance: SIMVASTATIN
  8. PROBIOTICS [Concomitant]
     Active Substance: PROBIOTICS NOS
  9. MEDICAL GRADE MANUKA HONEY [Suspect]
     Active Substance: HERBALS\HONEY
     Indication: RHINITIS
     Dosage: ?          OTHER ROUTE:SPRAYED INTO NOSE?
     Route: 045
     Dates: start: 20201018, end: 20201021
  10. KIDNEY VITAMINS [Concomitant]

REACTIONS (4)
  - Recalled product administered [None]
  - Product quality issue [None]
  - Product contamination microbial [None]
  - Nasal discomfort [None]

NARRATIVE: CASE EVENT DATE: 20201215
